FAERS Safety Report 5896156-4 (Version None)
Quarter: 2008Q3

REPORT INFORMATION
  Report Type: 
  Country: None (occurrence: None)
  Receive Date: 20080924
  Receipt Date: 20080507
  Transmission Date: 20090109
  Serious: Yes (Hospitalization)
  Sender: FDA-Public Use
  Company Number: US-ASTRAZENECA-2007UW13942

PATIENT
  Age: 32 Year
  Sex: Male
  Weight: 127 kg

DRUGS (6)
  1. SEROQUEL [Suspect]
     Indication: SCHIZOPHRENIA
     Route: 048
     Dates: start: 20010103
  2. SEROQUEL [Suspect]
     Indication: BIPOLAR DISORDER
     Route: 048
     Dates: start: 20010103
  3. ZYPREXA [Concomitant]
     Indication: SCHIZOPHRENIA
     Dates: start: 19970619, end: 20010112
  4. ZYPREXA [Concomitant]
     Indication: BIPOLAR DISORDER
     Dates: start: 19970619, end: 20010112
  5. NAVANE (THIOTHIXINE) [Concomitant]
  6. STELAZINE [Concomitant]

REACTIONS (1)
  - DIABETES MELLITUS [None]
